FAERS Safety Report 9564034 (Version 4)
Quarter: 2013Q4

REPORT INFORMATION
  Report Type: Spontaneous
  Country: GB (occurrence: GB)
  Receive Date: 20130928
  Receipt Date: 20131226
  Transmission Date: 20140711
  Serious: Yes (Other)
  Sender: FDA-Public Use
  Company Number: PHFR2013GB005469

PATIENT
  Sex: Female

DRUGS (1)
  1. CLOZARIL [Suspect]
     Route: 048
     Dates: start: 20130806

REACTIONS (4)
  - Dementia [Unknown]
  - Swelling face [Recovered/Resolved]
  - Ear disorder [Recovered/Resolved]
  - Drug ineffective [Recovered/Resolved]
